FAERS Safety Report 8293347-2 (Version None)
Quarter: 2012Q2

REPORT INFORMATION
  Report Type: 
  Country: None (occurrence: None)
  Receive Date: 20120417
  Receipt Date: 20110902
  Transmission Date: 20120825
  Serious: No
  Sender: FDA-Public Use
  Company Number: US-ASTRAZENECA-2007UW21588

PATIENT
  Age: 72 Year
  Sex: Male
  Weight: 74.8 kg

DRUGS (8)
  1. PREVACID [Concomitant]
  2. OMEPRAZOLE [Suspect]
     Route: 048
  3. DICYCLOMINE [Concomitant]
  4. ALPRAZOLAM [Concomitant]
  5. NEXIUM [Suspect]
     Indication: GASTROOESOPHAGEAL REFLUX DISEASE
     Route: 048
     Dates: start: 20020101
  6. ACIPHEX [Concomitant]
  7. ASPIRIN [Concomitant]
  8. PROTONIX [Concomitant]

REACTIONS (4)
  - DYSPEPSIA [None]
  - DRUG INEFFECTIVE [None]
  - CHEST PAIN [None]
  - DRUG DOSE OMISSION [None]
